FAERS Safety Report 23341196 (Version 2)
Quarter: 2024Q1

REPORT INFORMATION
  Report Type: Spontaneous
  Country: US (occurrence: US)
  Receive Date: 20231227
  Receipt Date: 20240125
  Transmission Date: 20240409
  Serious: No
  Sender: FDA-Public Use
  Company Number: US-COSETTE-CP2023US000226

PATIENT
  Age: 52 Year
  Sex: Male
  Weight: 152 kg

DRUGS (3)
  1. CLOMIPHENE CITRATE [Suspect]
     Active Substance: CLOMIPHENE CITRATE
     Indication: Hypogonadism
     Route: 048
  2. VITAMINS NOS [Concomitant]
     Active Substance: VITAMINS
     Indication: Product used for unknown indication
     Route: 065
  3. ARGININE [Concomitant]
     Active Substance: ARGININE
     Indication: Product used for unknown indication
     Route: 065

REACTIONS (5)
  - Blood testosterone decreased [Unknown]
  - Asthenia [Unknown]
  - Libido decreased [Unknown]
  - Drug ineffective for unapproved indication [Unknown]
  - Product physical issue [Unknown]
